FAERS Safety Report 5007247-4 (Version None)
Quarter: 2006Q2

REPORT INFORMATION
  Report Type: 
  Country: None (occurrence: None)
  Receive Date: 20060519
  Receipt Date: 20060519
  Transmission Date: 20061013
  Serious: Yes (Other)
  Sender: FDA-Public Use
  Company Number: None

PATIENT
  Sex: Male
  Weight: 68.4932 kg

DRUGS (1)
  1. ROSUVASTATIN 10 MG (ASTRAZENECA) [Suspect]
     Dosage: 10 MG AT BEDTIME PO
     Route: 048
     Dates: start: 20060309, end: 20060326

REACTIONS (4)
  - DIZZINESS [None]
  - MYALGIA [None]
  - POLLAKIURIA [None]
  - TREMOR [None]
